FAERS Safety Report 5346651-1 (Version None)
Quarter: 2007Q2

REPORT INFORMATION
  Report Type: 
  Country: None (occurrence: None)
  Receive Date: 20070605
  Receipt Date: 20070525
  Transmission Date: 20071010
  Serious: Yes (Death, Other)
  Sender: FDA-Public Use
  Company Number: JP-PFIZER INC-2007038327

PATIENT
  Sex: Male
  Weight: 49 kg

DRUGS (29)
  1. ATARAX [Suspect]
  2. MYSLEE [Suspect]
     Route: 048
     Dates: start: 20070427, end: 20070427
  3. LENDORMIN [Concomitant]
  4. PRAVASTATIN [Concomitant]
     Route: 048
  5. HARNAL [Concomitant]
     Route: 048
  6. DIART [Concomitant]
     Route: 048
  7. URINORM [Concomitant]
     Route: 048
  8. GASTROM [Concomitant]
     Route: 048
  9. AM [Concomitant]
     Route: 048
  10. ASCOMP [Concomitant]
     Route: 048
  11. METHAPHYLLIN [Concomitant]
     Route: 048
  12. ROHYPNOL [Concomitant]
     Route: 048
  13. NEUOMIL [Concomitant]
     Route: 048
  14. OPYSTAN [Concomitant]
     Route: 042
     Dates: start: 20070424, end: 20070424
  15. LACTEC [Concomitant]
     Route: 042
     Dates: start: 20070424, end: 20070427
  16. PENTAGIN [Concomitant]
     Route: 042
     Dates: start: 20070424, end: 20070424
  17. BUSCOPAN [Concomitant]
     Route: 042
     Dates: start: 20070424, end: 20070424
  18. AMINO ACIDS/ELECTROLYTES/GLUCOSE/VITAMINS [Concomitant]
     Route: 042
     Dates: start: 20070424, end: 20070426
  19. SUBVITAN [Concomitant]
     Route: 042
     Dates: start: 20070424, end: 20070427
  20. PANSPORIN [Concomitant]
     Route: 042
     Dates: start: 20070425, end: 20070427
  21. DOPAMINE HCL [Concomitant]
     Route: 042
     Dates: start: 20070425, end: 20070425
  22. VITAMINS, OTHER COMBINATIONS [Concomitant]
     Route: 042
     Dates: start: 20070426, end: 20070427
  23. VOLTAREN [Concomitant]
     Route: 054
     Dates: start: 20070426, end: 20070426
  24. ASPARA K [Concomitant]
     Route: 042
     Dates: start: 20070426, end: 20070426
  25. HALOPERIDOL [Concomitant]
     Route: 030
     Dates: start: 20070427, end: 20070427
  26. CERCINE [Concomitant]
     Route: 042
     Dates: start: 20070427, end: 20070427
  27. BOSMIN [Concomitant]
     Route: 042
     Dates: start: 20070427, end: 20070427
  28. DOBUTREX [Concomitant]
     Route: 042
     Dates: start: 20070427, end: 20070427
  29. MEYLON [Concomitant]
     Route: 042
     Dates: start: 20070427, end: 20070427

REACTIONS (1)
  - ABNORMAL BEHAVIOUR [None]
